FAERS Safety Report 7439684-2 (Version None)
Quarter: 2011Q2

REPORT INFORMATION
  Report Type: 
  Country: None (occurrence: None)
  Receive Date: 20110427
  Receipt Date: 20110414
  Transmission Date: 20111010
  Serious: Yes (Other)
  Sender: FDA-Public Use
  Company Number: PHHY2011ZA33366

PATIENT
  Age: 40 Year
  Sex: Female

DRUGS (1)
  1. ACLASTA [Suspect]
     Dosage: 5 MG, UNK
     Route: 042
     Dates: start: 20100401

REACTIONS (3)
  - PAIN IN EXTREMITY [None]
  - FEMUR FRACTURE [None]
  - MUSCLE SPASMS [None]
